FAERS Safety Report 5194283-0 (Version None)
Quarter: 2006Q4

REPORT INFORMATION
  Report Type: 
  Country: None (occurrence: None)
  Receive Date: 20061228
  Receipt Date: 20061220
  Transmission Date: 20070319
  Serious: Yes (Hospitalization)
  Sender: FDA-Public Use
  Company Number: US-ABBOTT-06P-163-0353913-00

PATIENT
  Sex: Male

DRUGS (1)
  1. OMNICEF [Suspect]
     Indication: TONSILLITIS
     Route: 048
     Dates: start: 20061103, end: 20061106

REACTIONS (4)
  - DIALYSIS [None]
  - DIARRHOEA [None]
  - NEPHRITIS INTERSTITIAL [None]
  - VOMITING [None]
